FAERS Safety Report 23571582 (Version 2)
Quarter: 2024Q3

REPORT INFORMATION
  Report Type: Spontaneous
  Country: FR (occurrence: FR)
  Receive Date: 20240227
  Receipt Date: 20240718
  Transmission Date: 20241017
  Serious: Yes (Other)
  Sender: AUROBINDO
  Company Number: FR-AFSSAPS-AN2024000179

PATIENT
  Age: 74 Year
  Sex: Male

DRUGS (6)
  1. RAMIPRIL [Suspect]
     Active Substance: RAMIPRIL
     Indication: Hypertension
     Dosage: 2.5 MILLIGRAM, ONCE A DAY
     Route: 048
  2. FLUVASTATIN [Suspect]
     Active Substance: FLUVASTATIN SODIUM
     Indication: Dyslipidaemia
     Dosage: 20 MILLIGRAM, ONCE A DAY
     Route: 048
  3. JANUVIA [Suspect]
     Active Substance: SITAGLIPTIN PHOSPHATE
     Indication: Type 2 diabetes mellitus
     Dosage: 50 MILLIGRAM, ONCE A DAY
     Route: 048
  4. ATEZOLIZUMAB [Suspect]
     Active Substance: ATEZOLIZUMAB
     Indication: Hepatocellular carcinoma
     Dosage: 1 DOSAGE FORM (3 TIMES IN A WEEK)
     Route: 042
     Dates: start: 202302, end: 202309
  5. ESOMEPRAZOLE [Suspect]
     Active Substance: ESOMEPRAZOLE
     Indication: Prophylaxis against gastrointestinal ulcer
     Dosage: 1 DOSAGE FORM, ONCE A DAY
     Route: 048
  6. BEVACIZUMAB [Suspect]
     Active Substance: BEVACIZUMAB
     Indication: Hepatocellular carcinoma
     Dosage: 1 DOSAGE FORM (3 TIMES IN A WEEK)
     Route: 042
     Dates: start: 202302, end: 202309

REACTIONS (2)
  - Pharyngeal necrosis [Recovering/Resolving]
  - Radiation necrosis [Recovering/Resolving]

NARRATIVE: CASE EVENT DATE: 20231002
